FAERS Safety Report 5710097-4 (Version None)
Quarter: 2008Q2

REPORT INFORMATION
  Report Type: 
  Country: None (occurrence: None)
  Receive Date: 20080418
  Receipt Date: 20071115
  Transmission Date: 20081010
  Serious: No
  Sender: FDA-Public Use
  Company Number: US-ASTRAZENECA-2007UW26410

PATIENT
  Sex: Female

DRUGS (1)
  1. TOPROL-XL [Suspect]

REACTIONS (1)
  - INSOMNIA [None]
